FAERS Safety Report 12173847 (Version 1)
Quarter: 2016Q1

REPORT INFORMATION
  Report Type: Spontaneous
  Country: US (occurrence: None)
  Receive Date: 20160311
  Receipt Date: 20160311
  Transmission Date: 20160526
  Serious: No
  Sender: FDA-Public Use
  Company Number: None

PATIENT
  Age: 57 Month
  Sex: Male
  Weight: 113.4 kg

DRUGS (8)
  1. TAMSULOSIN HCL [Concomitant]
     Active Substance: TAMSULOSIN
  2. METOPROLOL SUCC ER [Concomitant]
     Active Substance: METOPROLOL SUCCINATE
  3. CELECOXIB 200 MG APOTEX [Suspect]
     Active Substance: CELECOXIB
     Indication: ARTHRALGIA
     Dosage: 2 PILL PER DAY TWICE DAILY TAKEN BY MOUTH
     Route: 048
     Dates: start: 20160101, end: 20160309
  4. ALLOPURINOL. [Concomitant]
     Active Substance: ALLOPURINOL
  5. PREVISON [Concomitant]
     Active Substance: MESTRANOL\NORETHYNODREL
  6. LEVOTHYROXINE. [Concomitant]
     Active Substance: LEVOTHYROXINE
  7. NAPROXEN. [Suspect]
     Active Substance: NAPROXEN
  8. VIT A [Concomitant]

REACTIONS (3)
  - Hypersensitivity [None]
  - Eye disorder [None]
  - Product substitution issue [None]
